FAERS Safety Report 7417381-7 (Version None)
Quarter: 2011Q2

REPORT INFORMATION
  Report Type: 
  Country: None (occurrence: None)
  Receive Date: 20110408
  Receipt Date: 20110323
  Transmission Date: 20111010
  Serious: Yes (Other)
  Sender: FDA-Public Use
  Company Number: MSTR-NO-1104S-0090

PATIENT
  Age: 64 Year
  Sex: Female
  Weight: 45 kg

DRUGS (1)
  1. METASTRON [Suspect]
     Indication: METASTATIC PAIN
     Dosage: 134 MBQ, SINGLE DOSE, INTRAVENOUS
     Route: 042
     Dates: start: 20090327, end: 20090327

REACTIONS (3)
  - ANAEMIA [None]
  - NEOPLASM PROGRESSION [None]
  - BREAST CANCER [None]
